FAERS Safety Report 4898656-2 (Version None)
Quarter: 2006Q1

REPORT INFORMATION
  Report Type: 
  Country: None (occurrence: None)
  Receive Date: 20060127
  Receipt Date: 20060106
  Transmission Date: 20060701
  Serious: Yes (Other)
  Sender: FDA-Public Use
  Company Number: US200601001647

PATIENT

DRUGS (1)
  1. HUMALOG [Suspect]
     Dosage: TRANSPLACENTAL
     Route: 064
     Dates: start: 20010704

REACTIONS (5)
  - CAESAREAN SECTION [None]
  - DRUG EXPOSURE DURING PREGNANCY [None]
  - LARGE FOR DATES BABY [None]
  - PHARMACEUTICAL PRODUCT COMPLAINT [None]
  - PREMATURE BABY [None]
